FAERS Safety Report 8924849 (Version 1)
Quarter: 2012Q4

REPORT INFORMATION
  Report Type: 
  Country: US (occurrence: US)
  Receive Date: 20121126
  Receipt Date: 20121126
  Transmission Date: 20130627
  Serious: Yes (Hospitalization)
  Sender: FDA-Public Use
  Company Number: US-BAYER-2012-121425

PATIENT
  Age: 24 Year
  Sex: Female

DRUGS (4)
  1. YASMIN [Suspect]
  2. ZANTAC [Concomitant]
     Indication: GASTROESOPHAGEAL REFLUX PROPHYLAXIS
  3. MORPHINE [Concomitant]
     Indication: PAIN
  4. SCDS [Concomitant]
     Indication: DVT PROPHYLAXIS

REACTIONS (1)
  - Superior sagittal sinus thrombosis [Recovering/Resolving]
